FAERS Safety Report 10226464 (Version 1)
Quarter: 2014Q2

REPORT INFORMATION
  Report Type: Spontaneous
  Country: US (occurrence: US)
  Receive Date: 20140609
  Receipt Date: 20140609
  Transmission Date: 20141212
  Serious: No
  Sender: FDA-Public Use
  Company Number: US-AMGEN INC.-USASP2014004497

PATIENT
  Age: 66 Year
  Sex: Female
  Weight: 134.24 kg

DRUGS (2)
  1. PROCRIT [Suspect]
     Indication: RENAL FAILURE CHRONIC
     Dosage: UNK
     Route: 065
  2. EPOGEN [Suspect]
     Indication: ANAEMIA
     Dosage: UNK
     Route: 065

REACTIONS (1)
  - Blood creatinine abnormal [Unknown]
